FAERS Safety Report 12153945 (Version 1)
Quarter: 2016Q1

REPORT INFORMATION
  Report Type: Spontaneous
  Country: US (occurrence: None)
  Receive Date: 20160304
  Receipt Date: 20160304
  Transmission Date: 20160526
  Serious: Yes (Other)
  Sender: FDA-Public Use
  Company Number: None

PATIENT
  Age: 61 Year
  Sex: Male

DRUGS (1)
  1. LUPRON [Suspect]
     Active Substance: LEUPROLIDE ACETATE
     Indication: OESOPHAGEAL HAEMORRHAGE
     Dosage: INJECTABLE Q4MTHS
     Route: 030
     Dates: start: 20130220

REACTIONS (1)
  - Oesophageal ulcer haemorrhage [None]

NARRATIVE: CASE EVENT DATE: 20160209
